FAERS Safety Report 16965744 (Version 1)
Quarter: 2019Q4

REPORT INFORMATION
  Report Type: Spontaneous
  Country: US (occurrence: US)
  Receive Date: 20190909
  Receipt Date: 20190909
  Transmission Date: 20200122
  Serious: No
  Sender: FDA-Public Use
  Company Number: None

PATIENT
  Age: 60 Year
  Sex: Male

DRUGS (2)
  1. VANCOMYCIN [Suspect]
     Active Substance: VANCOMYCIN
     Indication: CELLULITIS
     Route: 042
     Dates: start: 20190618, end: 20190626
  2. CEFAZOLIN [Suspect]
     Active Substance: CEFAZOLIN
     Indication: CELLULITIS
     Route: 042
     Dates: start: 20190618, end: 20190626

REACTIONS (2)
  - Drug level increased [None]
  - Acute kidney injury [None]

NARRATIVE: CASE EVENT DATE: 20190626
